FAERS Safety Report 8272419 (Version 2)
Quarter: 2013Q3

REPORT INFORMATION
  Report Type: Spontaneous
  Country: US (occurrence: US)
  Receive Date: 20111202
  Receipt Date: 20130802
  Transmission Date: 20140515
  Serious: Yes (Hospitalization)
  Sender: FDA-Public Use
  Company Number: US-BAYER-2011-113818

PATIENT
  Age: 37 Year
  Sex: Female

DRUGS (10)
  1. YAZ [Suspect]
     Dosage: UNK
     Dates: start: 200709, end: 200905
  2. OCELLA [Suspect]
  3. PHENTERMINE [Concomitant]
     Dosage: 37.5 MG, UNK
  4. CYMBALTA [Concomitant]
     Dosage: 30 MG, UNK
  5. FENOFIBRATE [Concomitant]
     Dosage: 134 MG, UNK
  6. METOCLOPRAMIDE [Concomitant]
     Dosage: 10 MG, UNK
  7. ALPRAZOLAM [Concomitant]
     Dosage: 0.5 MG, UNK
  8. TRICOR [Concomitant]
     Dosage: 145 MG, UNK
  9. METFORMIN [Concomitant]
     Dosage: 1000 MG, UNK
  10. INDAPAMIDE [Concomitant]
     Dosage: 2.5 MG, UNK

REACTIONS (5)
  - Cholelithiasis [None]
  - Cholecystitis chronic [None]
  - Abdominal pain lower [None]
  - Injury [None]
  - Emotional distress [None]
